FAERS Safety Report 4442505-3 (Version None)
Quarter: 2004Q3

REPORT INFORMATION
  Report Type: 
  Country: None (occurrence: None)
  Receive Date: 20040903
  Receipt Date: 20040820
  Transmission Date: 20050211
  Serious: Yes (Other)
  Sender: FDA-Public Use
  Company Number: 2004UW14381

PATIENT
  Age: 56 Year
  Sex: Male
  Weight: 80.7403 kg

DRUGS (4)
  1. CRESTOR [Suspect]
     Dosage: 10 MG QD PO
     Route: 048
     Dates: start: 20031101, end: 20040601
  2. CRESTOR [Suspect]
     Dosage: 5 MG QD PO
     Route: 048
     Dates: start: 20040601
  3. NEURONTIN [Concomitant]
  4. MULTIVITAMIN [Concomitant]

REACTIONS (1)
  - HIGH DENSITY LIPOPROTEIN DECREASED [None]
